FAERS Safety Report 14826563 (Version 2)
Quarter: 2018Q2

REPORT INFORMATION
  Report Type: Spontaneous
  Country: BR (occurrence: BR)
  Receive Date: 20180430
  Receipt Date: 20180518
  Transmission Date: 20180711
  Serious: Yes (Death)
  Sender: FDA-Public Use
  Company Number: PHHY2018BR075930

PATIENT
  Age: 77 Year
  Sex: Female
  Weight: 83 kg

DRUGS (3)
  1. ZOMETA [Concomitant]
     Active Substance: ZOLEDRONIC ACID
     Indication: CHEMOTHERAPY
     Dosage: UNK UNK, QMO
     Route: 065
     Dates: start: 201608, end: 20180417
  2. EXEMESTANE. [Concomitant]
     Active Substance: EXEMESTANE
     Indication: CHEMOTHERAPY
     Dosage: 25 MG, UNK (1 TABLET EVERY 24 HOURS CONTINOUS USE)
     Route: 048
     Dates: start: 20180409, end: 20180424
  3. AFINITOR [Suspect]
     Active Substance: EVEROLIMUS
     Indication: PRODUCT USED FOR UNKNOWN INDICATION
     Dosage: 10 MG, UNK (1 TABLET EVERY 24 HOURS CONTINOUS USE, FIRST WEEK SHE TOOK ONLY HALF TABLET)
     Route: 048
     Dates: start: 20180409, end: 20180424

REACTIONS (5)
  - Septic shock [Fatal]
  - Diarrhoea [Not Recovered/Not Resolved]
  - Dyspnoea [Unknown]
  - Breast cancer metastatic [Fatal]
  - Fatigue [Not Recovered/Not Resolved]

NARRATIVE: CASE EVENT DATE: 20180420
